FAERS Safety Report 7111057-1 (Version None)
Quarter: 2010Q4

REPORT INFORMATION
  Report Type: 
  Country: None (occurrence: None)
  Receive Date: 20101118
  Receipt Date: 20101109
  Transmission Date: 20110411
  Serious: Yes (Hospitalization)
  Sender: FDA-Public Use
  Company Number: CH-SANOFI-AVENTIS-2010SA068423

PATIENT
  Age: 90 Year
  Sex: Female

DRUGS (6)
  1. LASIX [Suspect]
     Route: 048
     Dates: end: 20100620
  2. TILUR [Suspect]
     Indication: DRUG ABUSE
     Route: 048
     Dates: end: 20100620
  3. LODINE [Suspect]
     Route: 048
     Dates: end: 20100620
  4. TORASEMIDE [Suspect]
     Route: 048
     Dates: end: 20100620
  5. AMILORIDE HCL AND HYDROCHLOROTHIAZIDE [Concomitant]
     Route: 048
  6. FLURAZEPAM [Concomitant]
     Route: 048

REACTIONS (3)
  - DEHYDRATION [None]
  - DRUG ABUSE [None]
  - RENAL FAILURE [None]
